FAERS Safety Report 7891754-0 (Version None)
Quarter: 2011Q4

REPORT INFORMATION
  Report Type: 
  Country: None (occurrence: None)
  Receive Date: 20111103
  Receipt Date: 20110809
  Transmission Date: 20120403
  Serious: No
  Sender: FDA-Public Use
  Company Number: US-AMGEN-USASP2011040484

PATIENT
  Sex: Female

DRUGS (1)
  1. ENBREL [Suspect]
     Indication: ANKYLOSING SPONDYLITIS
     Dosage: 50 MG, QWK
     Dates: start: 20060203

REACTIONS (5)
  - OEDEMA PERIPHERAL [None]
  - FATIGUE [None]
  - CONTUSION [None]
  - LIMB INJURY [None]
  - VARICOSE VEIN [None]
